FAERS Safety Report 17861261 (Version 3)
Quarter: 2020Q4

REPORT INFORMATION
  Report Type: Spontaneous
  Country: US (occurrence: US)
  Receive Date: 20200604
  Receipt Date: 20201204
  Transmission Date: 20210113
  Serious: No
  Sender: FDA-Public Use
  Company Number: US-HARMONY BIOSCIENCES-2020HMY00168

PATIENT
  Sex: Male

DRUGS (3)
  1. WAKIX [Suspect]
     Active Substance: PITOLISANT HYDROCHLORIDE
     Dosage: 17.8 MG, 1X/DAY
     Route: 048
     Dates: start: 20200630
  2. WAKIX [Suspect]
     Active Substance: PITOLISANT HYDROCHLORIDE
     Indication: SOMNOLENCE
     Dosage: 35.6 MG, 1X/DAY
     Route: 048
  3. BUPROPION. [Suspect]
     Active Substance: BUPROPION
     Dosage: UNK

REACTIONS (6)
  - Gastrointestinal disorder [Recovered/Resolved]
  - Asthenia [Not Recovered/Not Resolved]
  - Therapeutic product effect decreased [Not Recovered/Not Resolved]
  - Nausea [Recovered/Resolved]
  - Labelled drug-drug interaction medication error [Not Recovered/Not Resolved]
  - Crohn^s disease [Recovered/Resolved]

NARRATIVE: CASE EVENT DATE: 2020
